FAERS Safety Report 22356675 (Version 1)
Quarter: 2023Q2

REPORT INFORMATION
  Report Type: Other
  Country: None (occurrence: US)
  Receive Date: 20230523
  Receipt Date: 20230523
  Transmission Date: 20230721
  Serious: Yes (Life-Threatening, Hospitalization)
  Sender: FDA-Public Use
  Company Number: US-B.Braun Medical Inc.-2141917

PATIENT
  Age: 27 Year
  Sex: Male

DRUGS (1)
  1. ACETAMINOPHEN [Suspect]
     Active Substance: ACETAMINOPHEN
     Indication: Suicide attempt

REACTIONS (8)
  - Hepatotoxicity [Unknown]
  - Haemolysis [Unknown]
  - Haemolytic anaemia [Unknown]
  - Hepatic failure [Unknown]
  - Acute kidney injury [Unknown]
  - Liver transplant [Unknown]
  - Methaemoglobinaemia [Unknown]
  - Intentional overdose [Unknown]
